FAERS Safety Report 4566689-1 (Version None)
Quarter: 2005Q1

REPORT INFORMATION
  Report Type: 
  Country: None (occurrence: None)
  Receive Date: 20050201
  Receipt Date: 20030605
  Transmission Date: 20050727
  Serious: Yes (Hospitalization, Disabling, Other)
  Sender: FDA-Public Use
  Company Number: US-MERCK-0306USA00741

PATIENT
  Age: 67 Year
  Sex: Male

DRUGS (21)
  1. VIOXX [Suspect]
     Indication: BACK PAIN
     Route: 048
     Dates: start: 19990101, end: 20010101
  2. CLARITIN [Concomitant]
     Route: 065
  3. ASPIRIN [Concomitant]
     Route: 065
  4. PRAVACHOL [Concomitant]
     Route: 065
  5. CALCIUM (UNSPECIFIED) [Concomitant]
     Route: 065
  6. FOLIC ACID [Concomitant]
     Route: 065
  7. DIGOXIN [Concomitant]
     Route: 065
  8. NAPROSYN [Concomitant]
     Route: 048
  9. KEFLEX [Concomitant]
     Route: 048
  10. ALLEGRA [Concomitant]
     Route: 048
  11. ELOCON [Concomitant]
     Route: 065
  12. LOPRESSOR [Concomitant]
     Route: 048
  13. DARVOCET-N 100 [Concomitant]
     Route: 048
  14. PRAVACHOL [Concomitant]
     Route: 065
  15. LANOXIN [Concomitant]
     Route: 048
  16. LORTAB [Concomitant]
     Route: 048
  17. CLARINEX [Concomitant]
     Route: 048
  18. ZOCOR [Concomitant]
     Route: 048
  19. NEXIUM [Concomitant]
     Route: 048
  20. PAXIL [Concomitant]
     Route: 048
  21. VITAMIN E [Concomitant]
     Route: 065

REACTIONS (46)
  - ACUTE SINUSITIS [None]
  - ADVERSE EVENT [None]
  - ANGINA PECTORIS [None]
  - ARRHYTHMIA [None]
  - BENIGN PROSTATIC HYPERPLASIA [None]
  - BLOOD PRESSURE INCREASED [None]
  - BRADYCARDIA [None]
  - BRONCHITIS ACUTE [None]
  - CEREBROVASCULAR ACCIDENT [None]
  - CHOLELITHIASIS [None]
  - CHRONIC OBSTRUCTIVE PULMONARY DISEASE [None]
  - CONVULSION [None]
  - CORONARY ARTERY DISEASE [None]
  - COUGH [None]
  - DECREASED APPETITE [None]
  - DEPRESSION [None]
  - DERMATITIS ATOPIC [None]
  - DIVERTICULUM [None]
  - DIZZINESS [None]
  - DYSGEUSIA [None]
  - DYSPNOEA [None]
  - EMPHYSEMA [None]
  - FATIGUE [None]
  - GASTROOESOPHAGEAL REFLUX DISEASE [None]
  - HAEMORRHOIDS [None]
  - HIATUS HERNIA [None]
  - INNER EAR DISORDER [None]
  - INTERVERTEBRAL DISC DEGENERATION [None]
  - LUMBAR RADICULOPATHY [None]
  - LUMBAR SPINAL STENOSIS [None]
  - LUNG NEOPLASM [None]
  - MYOCARDIAL INFARCTION [None]
  - NEUROMA [None]
  - NON-HODGKIN'S LYMPHOMA [None]
  - PALPITATIONS [None]
  - PEPTIC ULCER [None]
  - PERIPHERAL VASCULAR DISORDER [None]
  - PLEURAL EFFUSION [None]
  - RENAL ABSCESS [None]
  - RENAL CYST [None]
  - RENAL MASS [None]
  - RHINITIS ALLERGIC [None]
  - SPLENOMEGALY [None]
  - SPONDYLOLISTHESIS [None]
  - VERTIGO [None]
  - WEIGHT DECREASED [None]
